FAERS Safety Report 9311921 (Version 3)
Quarter: 2013Q2

REPORT INFORMATION
  Report Type: Report from Study
  Country: AU (occurrence: AU)
  Receive Date: 20130528
  Receipt Date: 20130617
  Transmission Date: 20140414
  Serious: Yes (Death, Other)
  Sender: FDA-Public Use
  Company Number: PHHY2013AU053440

PATIENT
  Age: 58 Year
  Sex: Male

DRUGS (2)
  1. CLOZARIL [Suspect]
     Dosage: 325 MG, UNK
     Route: 048
     Dates: start: 20080714
  2. AMISULPRIDE [Concomitant]
     Indication: SCHIZOPHRENIA
     Dosage: 150 MG, NOCTE
     Route: 048

REACTIONS (4)
  - Death [Fatal]
  - Chronic obstructive pulmonary disease [Unknown]
  - Barrett^s oesophagus [Unknown]
  - Pulmonary embolism [Unknown]
